FAERS Safety Report 8876211 (Version 1)
Quarter: 2012Q4

REPORT INFORMATION
  Report Type: 
  Country: US (occurrence: US)
  Receive Date: 20121030
  Receipt Date: 20121030
  Transmission Date: 20130627
  Serious: Yes (Other)
  Sender: FDA-Public Use
  Company Number: US-BAXTER-2012BAX020414

PATIENT
  Sex: Male

DRUGS (7)
  1. GAMMAGARD LIQUID [Suspect]
     Indication: IMMUNODEFICIENCY
     Dosage: 1-2 GRAMS
     Route: 058
     Dates: start: 201205
  2. GAMMAGARD LIQUID [Suspect]
     Dosage: 1-2 GRAMS
     Route: 058
  3. MILK OF MAGNESIA [Concomitant]
     Indication: DRUG USE FOR UNKNOWN INDICATION
     Dosage: UNKNOWN
     Route: 065
  4. ALLEGRA [Concomitant]
     Indication: ALLERGY
     Dosage: UNKNOWN
     Route: 065
  5. PATANASE [Concomitant]
     Indication: DRUG USE FOR UNKNOWN INDICATION
     Dosage: ONE PUFF
  6. NEXIUM [Concomitant]
     Indication: DRUG USE FOR UNKNOWN INDICATION
     Route: 065
  7. CLONIDINE [Concomitant]
     Indication: TROUBLE FALLING ASLEEP
     Dosage: UNKNOWN
     Route: 065

REACTIONS (1)
  - Urinary tract infection [Recovered/Resolved]
